FAERS Safety Report 19911546 (Version 1)
Quarter: 2021Q4

REPORT INFORMATION
  Report Type: Spontaneous
  Country: US (occurrence: US)
  Receive Date: 20211001
  Receipt Date: 20211001
  Transmission Date: 20220304
  Serious: Yes (Hospitalization)
  Sender: FDA-Public Use
  Company Number: None

PATIENT
  Sex: Female

DRUGS (1)
  1. TADALAFIL [Suspect]
     Active Substance: TADALAFIL
     Indication: Pulmonary arterial hypertension
     Dosage: ?          OTHER DOSE:2 TABLETS;
     Route: 048
     Dates: start: 20210818, end: 20210901

REACTIONS (3)
  - Migraine [None]
  - Pain [None]
  - Vomiting [None]
